FAERS Safety Report 23231421 (Version 3)
Quarter: 2024Q3

REPORT INFORMATION
  Report Type: Spontaneous
  Country: US (occurrence: US)
  Receive Date: 20231127
  Receipt Date: 20240822
  Transmission Date: 20241017
  Serious: No
  Sender: AVADEL CNS PHARMA
  Company Number: US-AVADEL CNS PHARMACEUTICALS, LLC-2023AVA00299

PATIENT
  Age: 48 Year
  Sex: Female
  Weight: 111.11 kg

DRUGS (18)
  1. LUMRYZ [Suspect]
     Active Substance: SODIUM OXYBATE
     Indication: Narcolepsy
     Dosage: 7.5 G, NIGHTLY
     Route: 048
     Dates: start: 202310
  2. LUMRYZ [Suspect]
     Active Substance: SODIUM OXYBATE
     Dosage: 7.5 G, NIGHTLY
     Route: 048
  3. UNSPECIFIED INGREDIENT [Suspect]
     Active Substance: UNSPECIFIED INGREDIENT
     Indication: Hypersensitivity
  4. MODAFINIL [Concomitant]
     Active Substance: MODAFINIL
     Dosage: 400 MG IN THE MORNING
  5. ROPINIROLE [Concomitant]
     Active Substance: ROPINIROLE
     Dosage: 2 MG, AS NEEDED
  6. NAPROXEN [Concomitant]
     Active Substance: NAPROXEN
     Dosage: 500 MG TWICE A DAY
  7. PREVACID [Concomitant]
     Active Substance: LANSOPRAZOLE
     Dosage: 30 MG ONCE DAILY
  8. CEVIMELINE [Concomitant]
     Active Substance: CEVIMELINE
     Dosage: UNK, TWICE A DAY
  9. HORMONE CREAM [Concomitant]
     Dosage: 1 MG
  10. ZYRTEC [Concomitant]
     Active Substance: CETIRIZINE HYDROCHLORIDE
     Dosage: UNK
  11. BIOTIN [Concomitant]
     Active Substance: BIOTIN
     Dosage: UNK
  12. BOTOX [Concomitant]
     Active Substance: ONABOTULINUMTOXINA
     Dosage: UNK, EVERY 3 MONTHS
  13. WELLBUTRIN [Concomitant]
     Active Substance: BUPROPION HYDROCHLORIDE
     Dosage: 150 MG ONCE A DAY
  14. LEXAPRO [Concomitant]
     Active Substance: ESCITALOPRAM OXALATE
     Dosage: 20 MG ONCE A DAY
  15. VALSARTAN AND HYDROCHLOROTHIAZIDE [Concomitant]
     Active Substance: HYDROCHLOROTHIAZIDE\VALSARTAN
     Dosage: 80/12.5 MG ONCE A DAY
  16. CALCIUM CITRATE [Concomitant]
     Active Substance: CALCIUM CITRATE
  17. POTASSIUM [Concomitant]
     Active Substance: POTASSIUM
  18. APPLE CIDER VINEGAR [MALUS SPP. VINEGAR EXTRACT] [Concomitant]

REACTIONS (9)
  - Insomnia [Unknown]
  - Dysphonia [Not Recovered/Not Resolved]
  - Product preparation issue [Recovered/Resolved]
  - Back injury [Recovering/Resolving]
  - Sciatica [Recovering/Resolving]
  - Sleep apnoea syndrome [Not Recovered/Not Resolved]
  - Spondylitis [Not Recovered/Not Resolved]
  - Product dose omission issue [Recovered/Resolved]
  - Product administration interrupted [Recovered/Resolved]

NARRATIVE: CASE EVENT DATE: 20231019
